FAERS Safety Report 9377324 (Version 1)
Quarter: 2013Q3

REPORT INFORMATION
  Report Type: Spontaneous
  Country: PT (occurrence: PT)
  Receive Date: 20130701
  Receipt Date: 20130701
  Transmission Date: 20140515
  Serious: Yes (Death)
  Sender: FDA-Public Use
  Company Number: PHHY2013PT064755

PATIENT
  Age: 52 Year
  Sex: Female

DRUGS (3)
  1. SIMULECT [Suspect]
     Indication: LIVER TRANSPLANT
     Dosage: 20 MG, ON DAYS ONE
     Route: 042
  2. SIMULECT [Suspect]
     Dosage: 20MG ON DAY 4
     Route: 042
  3. IMMUNOGLOBULIN I.V [Concomitant]
     Route: 042

REACTIONS (1)
  - Septic embolus [Fatal]
